FAERS Safety Report 23616083 (Version 3)
Quarter: 2025Q1

REPORT INFORMATION
  Report Type: Spontaneous
  Country: US (occurrence: US)
  Receive Date: 20240311
  Receipt Date: 20250122
  Transmission Date: 20250409
  Serious: Yes (Death, Disabling, Other)
  Sender: CHATTEM
  Company Number: US-OPELLA-2024OHG007352

PATIENT
  Age: 79 Year
  Sex: Male

DRUGS (1)
  1. GOLD BOND ORIGINAL STRENGTH [Suspect]
     Active Substance: MENTHOL
     Indication: Product used for unknown indication
     Route: 065

REACTIONS (11)
  - Epithelioid mesothelioma [Fatal]
  - Acute kidney injury [Unknown]
  - Injury [Unknown]
  - Loss of personal independence in daily activities [Unknown]
  - Exposure to chemical pollution [Unknown]
  - Fatigue [Unknown]
  - Chest pain [Unknown]
  - Asthenia [Unknown]
  - Pain [Unknown]
  - Anxiety [Unknown]
  - Quality of life decreased [Unknown]
